FAERS Safety Report 14417213 (Version 6)
Quarter: 2018Q2

REPORT INFORMATION
  Report Type: Spontaneous
  Country: DE (occurrence: DE)
  Receive Date: 20180122
  Receipt Date: 20180610
  Transmission Date: 20180711
  Serious: Yes (Death, Hospitalization, Disabling, Other)
  Sender: FDA-Public Use
  Company Number: DE-TORRENT-00007644

PATIENT
  Age: 80 Year
  Sex: Female

DRUGS (3)
  1. ACETYLSALICYLIC ACID [Suspect]
     Active Substance: ASPIRIN
     Indication: CORONARY ARTERIAL STENT INSERTION
     Route: 065
  2. ELIQUIS [Suspect]
     Active Substance: APIXABAN
     Indication: ANTICOAGULANT THERAPY
     Route: 065
  3. CLOPIDOGREL [Suspect]
     Active Substance: CLOPIDOGREL BISULFATE
     Indication: ANTICOAGULANT THERAPY
     Route: 065

REACTIONS (13)
  - Product use in unapproved indication [Unknown]
  - Osteomyelitis [Fatal]
  - Multiple organ dysfunction syndrome [Fatal]
  - Anal haemorrhage [Fatal]
  - Rectal haemorrhage [Fatal]
  - Diverticulitis [Fatal]
  - Gastrointestinal oedema [Fatal]
  - Anaemia [Fatal]
  - Anal stenosis [Fatal]
  - Osteonecrosis [Fatal]
  - Septic shock [Fatal]
  - Diverticulum [Fatal]
  - Muscle abscess [Fatal]
